FAERS Safety Report 8879367 (Version 2)
Quarter: 2013Q1

REPORT INFORMATION
  Report Type: Spontaneous
  Country: US (occurrence: US)
  Receive Date: 20121101
  Receipt Date: 20130301
  Transmission Date: 20140127
  Serious: No
  Sender: FDA-Public Use
  Company Number: US-BIOGENIDEC-2012BI047748

PATIENT
  Age: 30 Year
  Sex: Female

DRUGS (2)
  1. TYSABRI [Suspect]
     Indication: MULTIPLE SCLEROSIS
     Route: 042
     Dates: start: 20070223, end: 20100616
  2. TYSABRI [Suspect]
     Indication: MULTIPLE SCLEROSIS
     Route: 042
     Dates: start: 20110617

REACTIONS (6)
  - Body temperature increased [Recovered/Resolved]
  - Atypical pneumonia [Recovered/Resolved]
  - Bronchitis [Recovered/Resolved]
  - Urinary tract infection [Recovered/Resolved]
  - Gastroenteritis viral [Recovered/Resolved]
  - Nasopharyngitis [Recovered/Resolved]
